FAERS Safety Report 9224456 (Version 1)
Quarter: 2013Q1

REPORT INFORMATION
  Report Type: Spontaneous
  Country: US (occurrence: None)
  Receive Date: 20120917
  Receipt Date: 20120917
  Transmission Date: 20140127
  Serious: Yes (Life-Threatening, Hospitalization, Other)
  Sender: FDA-Public Use
  Company Number: 2012SP035655

PATIENT
  Age: 27 Year
  Sex: Female

DRUGS (4)
  1. IMPLANON [Suspect]
     Indication: CONTRACEPTION
     Dates: start: 2010, end: 20120624
  2. SOMA [Concomitant]
  3. OXYCONTIN [Concomitant]
  4. XANAX [Concomitant]

REACTIONS (1)
  - Pulmonary embolism [None]
